APPROVED DRUG PRODUCT: ALPRAZOLAM
Active Ingredient: ALPRAZOLAM
Strength: 0.25MG
Dosage Form/Route: TABLET;ORAL
Application: A074479 | Product #001
Applicant: WATSON LABORATORIES INC
Approved: Jan 21, 1997 | RLD: No | RS: No | Type: DISCN